FAERS Safety Report 15972728 (Version 1)
Quarter: 2019Q1

REPORT INFORMATION
  Report Type: Spontaneous
  Country: ES (occurrence: ES)
  Receive Date: 20190216
  Receipt Date: 20190216
  Transmission Date: 20190418
  Serious: Yes (Hospitalization)
  Sender: FDA-Public Use
  Company Number: ES-TEVA-2019-ES-1011814

PATIENT
  Age: 41 Year
  Sex: Male

DRUGS (3)
  1. CIPROFLOXACINO (2049A) [Concomitant]
     Active Substance: CIPROFLOXACIN
     Indication: MYCOBACTERIAL INFECTION
     Dosage: 800 MILLIGRAM DAILY;
     Route: 048
     Dates: start: 20180524
  2. LACTULOSA (1821A) [Suspect]
     Active Substance: LACTULOSE
     Indication: CONSTIPATION
     Route: 065
  3. ETAMBUTOL 400 MG COMPRIMIDO [Concomitant]
     Indication: MYCOBACTERIAL INFECTION
     Dosage: 800 MILLIGRAM DAILY;
     Route: 048
     Dates: start: 20180524

REACTIONS (1)
  - Diarrhoea [Recovered/Resolved]

NARRATIVE: CASE EVENT DATE: 20181107
